FAERS Safety Report 9071406 (Version 1)
Quarter: 2013Q1

REPORT INFORMATION
  Report Type: Spontaneous
  Country: FR (occurrence: FR)
  Receive Date: 20130129
  Receipt Date: 20130129
  Transmission Date: 20140127
  Serious: Yes (Hospitalization)
  Sender: FDA-Public Use
  Company Number: FR-ROCHE-1183126

PATIENT
  Age: 77 None
  Sex: Male

DRUGS (8)
  1. XELODA [Suspect]
     Indication: BREAST CANCER
     Dosage: DOSE DECREASED
     Route: 048
     Dates: end: 20081030
  2. XELODA [Suspect]
     Route: 048
     Dates: start: 200807
  3. INEXIUM [Concomitant]
  4. SKENAN LP [Concomitant]
  5. IMOVANE [Concomitant]
  6. LASILIX [Concomitant]
  7. DIFFU K [Concomitant]
  8. FORLAX (AUSTRIA) [Concomitant]

REACTIONS (4)
  - Palmoplantar keratoderma [Recovered/Resolved]
  - Palmoplantar keratoderma [Recovered/Resolved]
  - Skin exfoliation [Recovered/Resolved]
  - Dermatitis bullous [Recovered/Resolved]
